FAERS Safety Report 6829429-9 (Version None)
Quarter: 2010Q3

REPORT INFORMATION
  Report Type: 
  Country: None (occurrence: None)
  Receive Date: 20100709
  Receipt Date: 20070312
  Transmission Date: 20110219
  Serious: No
  Sender: FDA-Public Use
  Company Number: US-PFIZER INC-2007019981

PATIENT
  Sex: Female
  Weight: 54.43 kg

DRUGS (5)
  1. CHANTIX [Suspect]
     Indication: SMOKING CESSATION THERAPY
     Dates: start: 20061101, end: 20070201
  2. ACTONEL [Suspect]
     Indication: BONE DISORDER
     Dates: end: 20061201
  3. LASIX [Concomitant]
  4. ONE-A-DAY [Concomitant]
  5. VITAMIN D [Concomitant]

REACTIONS (1)
  - DYSPEPSIA [None]
